FAERS Safety Report 24075312 (Version 3)
Quarter: 2024Q3

REPORT INFORMATION
  Report Type: Report from Study
  Country: BE (occurrence: BE)
  Receive Date: 20240710
  Receipt Date: 20240806
  Transmission Date: 20241017
  Serious: Yes (Hospitalization)
  Sender: ABBVIE
  Company Number: BE-ABBVIE-5831732

PATIENT
  Age: 43 Year
  Sex: Female
  Weight: 102 kg

DRUGS (6)
  1. UPADACITINIB [Suspect]
     Active Substance: UPADACITINIB
     Indication: Axial spondyloarthritis
     Route: 048
     Dates: start: 20240131, end: 20240702
  2. UPADACITINIB [Suspect]
     Active Substance: UPADACITINIB
     Indication: Axial spondyloarthritis
     Route: 048
     Dates: start: 20240718
  3. ACETAMINOPHEN [Concomitant]
     Active Substance: ACETAMINOPHEN
     Indication: Axial spondyloarthritis
     Dosage: TIME INTERVAL: AS NECESSARY
     Route: 048
     Dates: start: 2008
  4. PANTOPRAZOLE [Concomitant]
     Active Substance: PANTOPRAZOLE
     Indication: Gastrointestinal disorder prophylaxis
     Route: 048
     Dates: start: 2021
  5. ZOLMITRIPTAN [Concomitant]
     Active Substance: ZOLMITRIPTAN
     Indication: Migraine
     Dosage: OCCASIONAL
     Route: 048
     Dates: start: 20120910
  6. IBUPROFEN [Concomitant]
     Active Substance: IBUPROFEN
     Indication: Axial spondyloarthritis
     Dosage: TIME INTERVAL: AS NECESSARY
     Route: 048
     Dates: start: 20220901, end: 20240703

REACTIONS (1)
  - Sleeve gastrectomy [Recovered/Resolved]

NARRATIVE: CASE EVENT DATE: 20240704
